FAERS Safety Report 23959209 (Version 1)
Quarter: 2024Q2

REPORT INFORMATION
  Report Type: Spontaneous
  Country: JP (occurrence: JP)
  Receive Date: 20240611
  Receipt Date: 20240611
  Transmission Date: 20240716
  Serious: Yes (Other)
  Sender: FDA-Public Use
  Company Number: JP-UCBJ-CD202405091UCBPHAPROD

PATIENT
  Age: 1 Year
  Sex: Male

DRUGS (1)
  1. VIMPAT [Suspect]
     Active Substance: LACOSAMIDE
     Indication: Partial seizures
     Dosage: UNK
     Route: 048

REACTIONS (3)
  - Partial seizures [Recovering/Resolving]
  - Infantile spasms [Recovering/Resolving]
  - Off label use [Unknown]
